FAERS Safety Report 5240013-3 (Version None)
Quarter: 2007Q1

REPORT INFORMATION
  Report Type: 
  Country: None (occurrence: None)
  Receive Date: 20070216
  Receipt Date: 20070205
  Transmission Date: 20070707
  Serious: Yes (Other)
  Sender: FDA-Public Use
  Company Number: GB-PFIZER INC-2007007388

PATIENT
  Age: 52 Year
  Sex: Male
  Weight: 93.2 kg

DRUGS (5)
  1. EXUBERA [Suspect]
     Indication: DIABETES MELLITUS
     Route: 055
     Dates: start: 20070109, end: 20070125
  2. GLICLAZIDE [Concomitant]
     Route: 048
  3. METFORMIN HYDROCHLORIDE [Concomitant]
     Route: 048
  4. SIMVASTATIN [Concomitant]
     Route: 048
  5. ACETYLSALICYLIC ACID SRT [Concomitant]
     Route: 048

REACTIONS (4)
  - CHEST PAIN [None]
  - HEART RATE INCREASED [None]
  - HEART RATE IRREGULAR [None]
  - PALPITATIONS [None]
